FAERS Safety Report 23165744 (Version 1)
Quarter: 2023Q4

REPORT INFORMATION
  Report Type: Spontaneous
  Country: US (occurrence: None)
  Receive Date: 20231108
  Receipt Date: 20231108
  Transmission Date: 20240109
  Serious: No
  Sender: FDA-Public Use
  Company Number: None

PATIENT
  Age: 72 Year
  Sex: Male

DRUGS (1)
  1. QUTENZA [Suspect]
     Active Substance: CAPSAICIN
     Indication: Neuropathy peripheral
     Dosage: 4 PATCHES ONCE TOPICALLY
     Route: 061
     Dates: start: 20230301

REACTIONS (1)
  - Burning sensation [None]

NARRATIVE: CASE EVENT DATE: 20230901
